FAERS Safety Report 4543630-9 (Version None)
Quarter: 2005Q1

REPORT INFORMATION
  Report Type: 
  Country: None (occurrence: None)
  Receive Date: 20050103
  Receipt Date: 20041201
  Transmission Date: 20050727
  Serious: Yes (Other)
  Sender: FDA-Public Use
  Company Number: DE-GLAXOSMITHKLINE-D0045378A

PATIENT
  Age: 12 Year
  Sex: Female
  Weight: 50 kg

DRUGS (3)
  1. LAMICTAL [Suspect]
     Indication: EPILEPSY
     Dosage: 60MG TWICE PER DAY
     Route: 065
     Dates: start: 20040301
  2. DIBRO-BE MONO [Concomitant]
     Indication: EPILEPSY
     Dosage: .75TAB TWICE PER DAY
     Route: 065
     Dates: start: 19930701
  3. ORFIRIL LONG [Concomitant]
     Indication: EPILEPSY
     Dosage: 450MG TWICE PER DAY
     Route: 065
     Dates: start: 19940401

REACTIONS (2)
  - ATRIOVENTRICULAR BLOCK FIRST DEGREE [None]
  - ELECTROCARDIOGRAM QT PROLONGED [None]
